FAERS Safety Report 14402984 (Version 1)
Quarter: 2018Q1

REPORT INFORMATION
  Report Type: Spontaneous
  Country: FR (occurrence: FR)
  Receive Date: 20180117
  Receipt Date: 20180117
  Transmission Date: 20180509
  Serious: Yes (Hospitalization)
  Sender: FDA-Public Use
  Company Number: FR-PFIZER INC-2018019781

PATIENT
  Age: 73 Year
  Sex: Female

DRUGS (3)
  1. PANTOPRAZOLE [Suspect]
     Active Substance: PANTOPRAZOLE
     Indication: GASTRIC ULCER
     Dosage: 40 MG, DAILY
     Route: 065
     Dates: start: 201709, end: 20171215
  2. LASILIX FAIBLE [Suspect]
     Active Substance: FUROSEMIDE
     Dosage: 20 MG, 1X/DAY
     Route: 048
     Dates: start: 20170729, end: 20171005
  3. ECONAZOLE [Suspect]
     Active Substance: ECONAZOLE
     Indication: INTERTRIGO
     Dosage: UNK
     Route: 003

REACTIONS (2)
  - Rash pruritic [Recovering/Resolving]
  - Toxic skin eruption [Recovering/Resolving]

NARRATIVE: CASE EVENT DATE: 20171023
